FAERS Safety Report 5573202-9 (Version None)
Quarter: 2007Q4

REPORT INFORMATION
  Report Type: 
  Country: None (occurrence: None)
  Receive Date: 20071224
  Receipt Date: 20071220
  Transmission Date: 20080405
  Serious: Yes (Life-Threatening, Hospitalization)
  Sender: FDA-Public Use
  Company Number: GB-SANOFI-SYNTHELABO-F01200701732

PATIENT
  Sex: Male

DRUGS (4)
  1. CETUXIMAB [Suspect]
     Route: 041
  2. CETUXIMAB [Suspect]
     Route: 065
  3. OXALIPLATIN [Suspect]
     Indication: COLORECTAL CANCER METASTATIC
     Route: 041
  4. CAPECITABINE [Suspect]
     Dosage: 1000 MG/M2 TWICE DALY ORALLY ON D1-14 EVERY 3 WEEKS

REACTIONS (1)
  - CEREBROVASCULAR ACCIDENT [None]
